FAERS Safety Report 9012729 (Version 5)
Quarter: 2014Q1

REPORT INFORMATION
  Report Type: Spontaneous
  Country: US (occurrence: US)
  Receive Date: 20130114
  Receipt Date: 20140326
  Transmission Date: 20141002
  Serious: Yes (Hospitalization, Disabling, Other)
  Sender: FDA-Public Use
  Company Number: US-009507513-1301USA005216

PATIENT
  Sex: Female
  Weight: 43.84 kg

DRUGS (1)
  1. NUVARING [Suspect]
     Indication: CONTRACEPTION
     Dosage: UNK
     Route: 067
     Dates: start: 201007, end: 20100810

REACTIONS (9)
  - Anaemia [Unknown]
  - Pulmonary embolism [Recovering/Resolving]
  - Hypomagnesaemia [Unknown]
  - Asthma [Unknown]
  - Dental care [Unknown]
  - Muscle spasms [Unknown]
  - Pain in extremity [Unknown]
  - Chest pain [Unknown]
  - Tendonitis [Unknown]
